FAERS Safety Report 9686625 (Version 3)
Quarter: 2014Q1

REPORT INFORMATION
  Report Type: Report from Study
  Country: JP (occurrence: JP)
  Receive Date: 20131113
  Receipt Date: 20140120
  Transmission Date: 20141002
  Serious: Yes (Hospitalization)
  Sender: FDA-Public Use
  Company Number: JP-GLAXOSMITHKLINE-B0941420A

PATIENT
  Sex: Male
  Weight: 58 kg

DRUGS (13)
  1. VOTRIENT 200MG [Suspect]
     Indication: UNDIFFERENTIATED SARCOMA
     Dosage: 400MG PER DAY
     Route: 048
     Dates: start: 20130227, end: 20130312
  2. VOTRIENT 200MG [Suspect]
     Indication: UNDIFFERENTIATED SARCOMA
     Dosage: 600MG PER DAY
     Route: 048
     Dates: start: 20130313, end: 20130521
  3. VOTRIENT 200MG [Suspect]
     Indication: UNDIFFERENTIATED SARCOMA
     Dosage: 600MG PER DAY
     Route: 048
     Dates: start: 20130606, end: 20130709
  4. FAMOSTAGINE [Concomitant]
     Route: 065
  5. MUCOSTA [Concomitant]
     Route: 065
  6. FUROSEMIDE [Concomitant]
     Route: 065
  7. MAGMITT [Concomitant]
     Route: 048
  8. ADONA (AC-17) [Concomitant]
     Route: 065
  9. TRANSAMIN [Concomitant]
     Route: 065
  10. NAIXAN [Concomitant]
     Route: 048
  11. SIMVASTATIN [Concomitant]
     Route: 048
  12. RINDERON [Concomitant]
     Route: 065
  13. ASVERIN [Concomitant]
     Route: 048

REACTIONS (3)
  - Infectious pleural effusion [Not Recovered/Not Resolved]
  - Pneumothorax [Recovered/Resolved]
  - Impaired healing [Not Recovered/Not Resolved]
